FAERS Safety Report 10361941 (Version 1)
Quarter: 2014Q1

REPORT INFORMATION
  Report Type: Spontaneous
  Country: US (occurrence: None)
  Receive Date: 20140306
  Receipt Date: 20140306
  Transmission Date: 20141002
  Serious: Yes (Other)
  Sender: FDA-Public Use
  Company Number: 163-21880-13074893

PATIENT
  Age: 69 Year
  Sex: Male
  Weight: 90.7 kg

DRUGS (9)
  1. REVLIMID [Suspect]
     Indication: PLASMA CELL MYELOMA
     Route: 048
     Dates: start: 201201
  2. PANTOPRAZOLE (PANTOPRAZOLE) (TABLETS) [Concomitant]
  3. LOVENOX (HEPARIN-FRACTION, SODIUM SALT) [Concomitant]
  4. HYDROCHLOROTHIAZIDE (HYDROCHLOROTHIAZIDE) (TABLETS) [Concomitant]
  5. LEVOTHYROXINE (LEVOTHYROXINE) (TABLETS) [Concomitant]
  6. DOXYCYCLINE HYC DR (DOXYCYCLINE) (TABLETS) [Concomitant]
  7. SPIRIVA (TIOTROPIUM BROMIDE) [Concomitant]
  8. CALCIUM (CALCIUM) (TABLETS) [Concomitant]
  9. MAGNESIUM (MAGNESIUM) (TABLETS) [Concomitant]

REACTIONS (1)
  - Thrombosis [None]
